FAERS Safety Report 5864556-4 (Version None)
Quarter: 2008Q3

REPORT INFORMATION
  Report Type: 
  Country: None (occurrence: None)
  Receive Date: 20080829
  Receipt Date: 20080714
  Transmission Date: 20090109
  Serious: No
  Sender: FDA-Public Use
  Company Number: US-ABBOTT-08P-163-0462589-00

PATIENT
  Sex: Male

DRUGS (10)
  1. SIMCOR [Suspect]
     Indication: BLOOD TRIGLYCERIDES
     Dosage: 500/20 MG AT BEDTIME
     Route: 048
     Dates: start: 20080630
  2. SIMCOR [Suspect]
     Indication: HIGH DENSITY LIPOPROTEIN
  3. SIMCOR [Suspect]
     Indication: BLOOD CHOLESTEROL
  4. LEVOTHYROXINE SODIUM [Concomitant]
     Indication: DRUG USE FOR UNKNOWN INDICATION
  5. LISINOPRIL [Concomitant]
     Indication: DRUG USE FOR UNKNOWN INDICATION
  6. OMEPRAZOLE [Concomitant]
     Indication: DRUG USE FOR UNKNOWN INDICATION
  7. CHLORPROMAZINE [Concomitant]
     Indication: DRUG USE FOR UNKNOWN INDICATION
  8. HYDROXYZINE HYDROCHLORIDE [Concomitant]
     Indication: DRUG USE FOR UNKNOWN INDICATION
  9. GLIBENCLAMIDE [Concomitant]
     Indication: DRUG USE FOR UNKNOWN INDICATION
  10. ACETYLSALICYLIC ACID SRT [Concomitant]
     Indication: DRUG USE FOR UNKNOWN INDICATION

REACTIONS (3)
  - DIZZINESS [None]
  - FLUSHING [None]
  - SLEEP DISORDER [None]
